FAERS Safety Report 7750174-X (Version None)
Quarter: 2011Q3

REPORT INFORMATION
  Report Type: 
  Country: None (occurrence: None)
  Receive Date: 20110914
  Receipt Date: 20110914
  Transmission Date: 20111222
  Serious: Yes (Other)
  Sender: FDA-Public Use
  Company Number: None

PATIENT
  Sex: Male

DRUGS (1)
  1. MARCAINE [Suspect]
     Indication: ANAESTHESIA PROCEDURE
     Dosage: 1.8ML
     Route: 042

REACTIONS (2)
  - DRUG EFFECT DELAYED [None]
  - DRUG EFFECT DECREASED [None]
